FAERS Safety Report 9135692 (Version 1)
Quarter: 2013Q1

REPORT INFORMATION
  Report Type: Spontaneous
  Country: DE (occurrence: DE)
  Receive Date: 20130304
  Receipt Date: 20130304
  Transmission Date: 20140127
  Serious: Yes (Other)
  Sender: FDA-Public Use
  Company Number: DE-GILEAD-2013-0070834

PATIENT
  Age: 83 Year
  Sex: Female

DRUGS (5)
  1. RANOLAZINE [Suspect]
     Indication: CARDIAC FAILURE CONGESTIVE
     Dosage: 375 MG, BID
     Route: 048
     Dates: start: 201208, end: 201211
  2. TORASEMIDE [Concomitant]
     Indication: CARDIAC FAILURE
     Dosage: 20 MG, QD
  3. LOSARTAN [Concomitant]
     Indication: CARDIAC FAILURE
     Dosage: 50 MG, QD
  4. LOSARTAN [Concomitant]
     Indication: HYPERTENSION
  5. MARCUMAR [Concomitant]
     Indication: ATRIAL FIBRILLATION
     Dosage: UNK

REACTIONS (1)
  - Renal failure acute [Recovered/Resolved]
